FAERS Safety Report 6894661-5 (Version None)
Quarter: 2010Q3

REPORT INFORMATION
  Report Type: 
  Country: None (occurrence: None)
  Receive Date: 20100727
  Receipt Date: 20100709
  Transmission Date: 20110219
  Serious: Yes (Other)
  Sender: FDA-Public Use
  Company Number: 2010-2433

PATIENT
  Sex: Female

DRUGS (2)
  1. SOMATULINE DEPOT [Suspect]
     Indication: ANGIODYSPLASIA
  2. SINTROM [Concomitant]

REACTIONS (1)
  - HYPERTENSIVE CRISIS [None]
